FAERS Safety Report 5004537-6 (Version None)
Quarter: 2006Q2

REPORT INFORMATION
  Report Type: 
  Country: None (occurrence: None)
  Receive Date: 20060516
  Receipt Date: 20060516
  Transmission Date: 20061013
  Serious: No
  Sender: FDA-Public Use
  Company Number: None

PATIENT
  Age: 87 Year
  Sex: Male

DRUGS (3)
  1. CEFTRIAXONE [Suspect]
     Indication: SKIN ULCER
     Dosage: 1 GM IV DAILY
     Route: 042
  2. GATIFLOXACIN [Suspect]
     Indication: PNEUMONIA ASPIRATION
     Dosage: 200 MG IV DAILY
     Route: 042
  3. CLINDAMYCIN [Suspect]
     Dosage: 300 MG Q8 X 1 DAY

REACTIONS (4)
  - CLOSTRIDIAL INFECTION [None]
  - METABOLIC ACIDOSIS [None]
  - PYREXIA [None]
  - RENAL FAILURE ACUTE [None]
